FAERS Safety Report 12776822 (Version 1)
Quarter: 2016Q3

REPORT INFORMATION
  Report Type: Report from Study
  Country: DE (occurrence: DE)
  Receive Date: 20160923
  Receipt Date: 20160923
  Transmission Date: 20161109
  Serious: Yes (Death, Hospitalization)
  Sender: FDA-Public Use
  Company Number: US-ASTRAZENECA-2016SF01509

PATIENT
  Age: 11 Month
  Sex: Female

DRUGS (4)
  1. SYNAGIS [Suspect]
     Active Substance: PALIVIZUMAB
     Indication: ANTIVIRAL PROPHYLAXIS
     Dosage: 95MG
     Route: 030
     Dates: start: 20091223, end: 20091223
  2. SYNAGIS [Suspect]
     Active Substance: PALIVIZUMAB
     Indication: ANTIVIRAL PROPHYLAXIS
     Dosage: 103MG
     Route: 030
     Dates: start: 20100219, end: 20100219
  3. SYNAGIS [Suspect]
     Active Substance: PALIVIZUMAB
     Indication: ANTIVIRAL PROPHYLAXIS
     Dosage: 99MG
     Route: 030
     Dates: start: 20100121, end: 20100121
  4. SYNAGIS [Suspect]
     Active Substance: PALIVIZUMAB
     Indication: ANTIVIRAL PROPHYLAXIS
     Dosage: 93MG
     Route: 030
     Dates: start: 20091127, end: 20091127

REACTIONS (4)
  - Bronchitis [Unknown]
  - Pneumonia [Fatal]
  - Infection [Unknown]
  - Disease progression [Unknown]

NARRATIVE: CASE EVENT DATE: 201002
